FAERS Safety Report 25840288 (Version 1)
Quarter: 2025Q3

REPORT INFORMATION
  Report Type: Spontaneous
  Country: AM (occurrence: AM)
  Receive Date: 20250924
  Receipt Date: 20250924
  Transmission Date: 20251021
  Serious: Yes (Death)
  Sender: RANBAXY
  Company Number: AM-SUN PHARMACEUTICAL INDUSTRIES LTD-2025RR-527865

PATIENT
  Age: 69 Year
  Sex: Male

DRUGS (1)
  1. IMATINIB [Suspect]
     Active Substance: IMATINIB
     Indication: Systemic mastocytosis
     Route: 065

REACTIONS (1)
  - Drug ineffective [Fatal]
